FAERS Safety Report 7865186-5 (Version None)
Quarter: 2011Q4

REPORT INFORMATION
  Report Type: 
  Country: None (occurrence: None)
  Receive Date: 20111028
  Receipt Date: 20101028
  Transmission Date: 20120403
  Serious: No
  Sender: FDA-Public Use
  Company Number: US-GLAXOSMITHKLINE-A0889387A

PATIENT
  Age: 78 Year
  Sex: Female
  Weight: 78.6 kg

DRUGS (5)
  1. ADVAIR DISKUS 100/50 [Suspect]
     Indication: LUNG DISORDER
     Route: 055
     Dates: start: 20101001
  2. SYNTHROID [Concomitant]
  3. PRAVASTATIN [Concomitant]
  4. BENICAR [Concomitant]
  5. ALENDRONATE SODIUM [Concomitant]

REACTIONS (1)
  - URTICARIA [None]
